FAERS Safety Report 16791249 (Version 1)
Quarter: 2019Q3

REPORT INFORMATION
  Report Type: Report from Study
  Country: US (occurrence: US)
  Receive Date: 20190910
  Receipt Date: 20190910
  Transmission Date: 20191005
  Serious: Yes (Death, Other)
  Sender: FDA-Public Use
  Company Number: US-ROCHE-2401807

PATIENT

DRUGS (6)
  1. DIPHENHYDRAMINE. [Concomitant]
     Active Substance: DIPHENHYDRAMINE
     Dosage: LESS THAN 0NE HOUR PRIOR TO PACLITAXEL INFUSION
     Route: 042
  2. BEVACIZUMAB. [Suspect]
     Active Substance: BEVACIZUMAB
     Indication: NON-SMALL CELL LUNG CANCER
     Dosage: OVER 30-90 MINUTES, ON DAY 1 OF EACH CYCLE
     Route: 042
  3. PEMETREXED. [Suspect]
     Active Substance: PEMETREXED
     Indication: NON-SMALL CELL LUNG CANCER
     Dosage: OVER 10 MINUTES ON DAY 1 OF EACH CYCLE
     Route: 042
  4. DEXAMETHASONE. [Concomitant]
     Active Substance: DEXAMETHASONE
     Route: 065
  5. CARBOPLATIN. [Suspect]
     Active Substance: CARBOPLATIN
     Indication: NON-SMALL CELL LUNG CANCER
     Dosage: AUC=6 MG/ML, OVER 15-30 MINUTES, ON DAY 1 OF EACH CYCLE
     Route: 042
  6. PACLITAXEL. [Suspect]
     Active Substance: PACLITAXEL
     Indication: NON-SMALL CELL LUNG CANCER
     Dosage: OVER 3 HOURS, ON DAY 1 OF EACH CYCLE
     Route: 042

REACTIONS (159)
  - Sepsis [Fatal]
  - Pulmonary haemorrhage [Fatal]
  - Haemothorax [Fatal]
  - Respiratory failure [Fatal]
  - Sinus tachycardia [Unknown]
  - Facial pain [Unknown]
  - Hyperhidrosis [Unknown]
  - Large intestinal haemorrhage [Unknown]
  - Duodenal ulcer [Unknown]
  - Gastrointestinal pain [Unknown]
  - Mucosal infection [Unknown]
  - Upper respiratory tract infection [Unknown]
  - Hip fracture [Unknown]
  - Alanine aminotransferase increased [Unknown]
  - Lymphocyte count decreased [Unknown]
  - Platelet count decreased [Unknown]
  - Dizziness [Unknown]
  - Encephalopathy [Unknown]
  - Posterior reversible encephalopathy syndrome [Unknown]
  - Oropharyngeal pain [Unknown]
  - Hallucination [Unknown]
  - Sudden death [Fatal]
  - Large intestine perforation [Fatal]
  - Gastric haemorrhage [Fatal]
  - Embolism [Fatal]
  - Obstruction gastric [Fatal]
  - Atrial fibrillation [Unknown]
  - Pyrexia [Unknown]
  - Infusion site extravasation [Unknown]
  - Rash maculo-papular [Unknown]
  - Abdominal pain [Unknown]
  - Upper gastrointestinal haemorrhage [Unknown]
  - Enteritis infectious [Unknown]
  - Enterocolitis infectious [Unknown]
  - Fall [Unknown]
  - Vascular access complication [Unknown]
  - Troponin I increased [Unknown]
  - Blood creatinine increased [Unknown]
  - Dehydration [Unknown]
  - Hypocalcaemia [Unknown]
  - Myalgia [Unknown]
  - Syncope [Unknown]
  - Respiratory failure [Unknown]
  - Proteinuria [Unknown]
  - Pulmonary hypertension [Unknown]
  - Fatigue [Fatal]
  - Dyspnoea [Fatal]
  - Anaemia [Unknown]
  - Left ventricular dysfunction [Unknown]
  - Infusion related reaction [Unknown]
  - Abdominal distension [Unknown]
  - Colitis [Unknown]
  - Diarrhoea [Unknown]
  - Oesophageal perforation [Unknown]
  - Lower gastrointestinal haemorrhage [Unknown]
  - Ejection fraction decreased [Unknown]
  - Weight increased [Unknown]
  - White blood cell count decreased [Unknown]
  - Decreased appetite [Unknown]
  - Hypophosphataemia [Unknown]
  - Bone pain [Unknown]
  - Delirium [Unknown]
  - Pulmonary oedema [Unknown]
  - Haematuria [Unknown]
  - Lymph gland infection [Unknown]
  - Febrile neutropenia [Unknown]
  - Duodenal perforation [Unknown]
  - Oesophagitis [Unknown]
  - Hypersensitivity [Unknown]
  - Anorectal infection [Unknown]
  - Oesophageal infection [Unknown]
  - Skin infection [Unknown]
  - Aspartate aminotransferase increased [Unknown]
  - Weight decreased [Unknown]
  - Musculoskeletal chest pain [Unknown]
  - Muscular weakness [Unknown]
  - Confusional state [Unknown]
  - Depression [Unknown]
  - Epistaxis [Unknown]
  - Hypotension [Unknown]
  - Alopecia [Unknown]
  - Gastric ulcer [Unknown]
  - Abdominal pain upper [Unknown]
  - Paraesthesia [Unknown]
  - International normalised ratio increased [Unknown]
  - Cardiac arrest [Fatal]
  - Cardiac failure [Fatal]
  - Lung infection [Fatal]
  - Myocardial infarction [Unknown]
  - Chills [Unknown]
  - Face oedema [Unknown]
  - Dermatitis acneiform [Unknown]
  - Dysphagia [Unknown]
  - Oesophageal fistula [Unknown]
  - Small intestinal obstruction [Unknown]
  - Device related infection [Unknown]
  - Troponin T increased [Unknown]
  - Hyperkalaemia [Unknown]
  - Hypoalbuminaemia [Unknown]
  - Back pain [Unknown]
  - Memory impairment [Unknown]
  - Neoplasm [Unknown]
  - Insomnia [Unknown]
  - Haemothorax [Unknown]
  - Pancreatitis [Unknown]
  - Proctitis [Unknown]
  - Bronchopleural fistula [Unknown]
  - Menstruation irregular [Unknown]
  - Hypermagnesaemia [Unknown]
  - Death [Fatal]
  - Acute coronary syndrome [Unknown]
  - Pericardial effusion [Unknown]
  - Oedema peripheral [Unknown]
  - Pain [Unknown]
  - Small intestinal perforation [Unknown]
  - Hyperglycaemia [Unknown]
  - Headache [Unknown]
  - Pneumonitis [Unknown]
  - Embolism [Unknown]
  - Neuralgia [Unknown]
  - Flank pain [Unknown]
  - Ataxia [Unknown]
  - Gastric perforation [Fatal]
  - Non-cardiac chest pain [Unknown]
  - Constipation [Unknown]
  - Stomatitis [Unknown]
  - Nausea [Unknown]
  - Anal fistula [Unknown]
  - Pelvic infection [Unknown]
  - Hypokalaemia [Unknown]
  - Hypomagnesaemia [Unknown]
  - Pain in extremity [Unknown]
  - Peripheral motor neuropathy [Unknown]
  - Aspiration [Unknown]
  - Pneumothorax [Unknown]
  - Hypertension [Unknown]
  - Intestinal ischaemia [Unknown]
  - Influenza like illness [Unknown]
  - Osteonecrosis [Unknown]
  - Angina pectoris [Unknown]
  - Cardiac disorder [Unknown]
  - Gait disturbance [Unknown]
  - Hypothermia [Unknown]
  - Gastritis [Unknown]
  - Vomiting [Unknown]
  - Anaphylactic reaction [Unknown]
  - Abdominal infection [Unknown]
  - Urinary tract infection [Unknown]
  - Neutrophil count decreased [Unknown]
  - Hyponatraemia [Unknown]
  - Arthralgia [Unknown]
  - Cognitive disorder [Unknown]
  - Disturbance in attention [Unknown]
  - Peripheral sensory neuropathy [Unknown]
  - Hypoxia [Unknown]
  - Pleural effusion [Unknown]
  - Wound dehiscence [Unknown]
  - Cough [Unknown]
  - Peripheral ischaemia [Unknown]
